FAERS Safety Report 5101172-6 (Version None)
Quarter: 2006Q3

REPORT INFORMATION
  Report Type: 
  Country: None (occurrence: None)
  Receive Date: 20060731
  Receipt Date: 20060411
  Transmission Date: 20061208
  Serious: No
  Sender: FDA-Public Use
  Company Number: 2006PV011927

PATIENT
  Age: 64 Year
  Sex: Male
  Weight: 83.9154 kg

DRUGS (3)
  1. BYETTA [Suspect]
     Dosage: 5 MCG;BID; SC
     Route: 058
     Dates: start: 20060402
  2. METHFORMIN [Concomitant]
  3. ACTOS [Concomitant]

REACTIONS (4)
  - DECREASED APPETITE [None]
  - DIARRHOEA [None]
  - INJECTION SITE BRUISING [None]
  - THERAPEUTIC RESPONSE UNEXPECTED [None]
